FAERS Safety Report 21889143 (Version 2)
Quarter: 2023Q2

REPORT INFORMATION
  Report Type: Report from Study
  Country: DE (occurrence: DE)
  Receive Date: 20230120
  Receipt Date: 20230615
  Transmission Date: 20230722
  Serious: Yes (Hospitalization)
  Sender: FDA-Public Use
  Company Number: DE-ARGENX-2023-ARGX-DE000183

PATIENT
  Age: 75 Year
  Sex: Male

DRUGS (1)
  1. VYVGART [Suspect]
     Active Substance: EFGARTIGIMOD ALFA-FCAB
     Indication: Product used for unknown indication
     Dosage: 900 MG

REACTIONS (6)
  - Diarrhoea [Recovering/Resolving]
  - Hypotension [Unknown]
  - Asthenia [Unknown]
  - Chills [Recovering/Resolving]
  - Gastrointestinal infection [Unknown]
  - Fatigue [Recovering/Resolving]

NARRATIVE: CASE EVENT DATE: 20230113
